FAERS Safety Report 25323927 (Version 2)
Quarter: 2025Q2

REPORT INFORMATION
  Report Type: Spontaneous
  Country: AT (occurrence: AT)
  Receive Date: 20250516
  Receipt Date: 20250523
  Transmission Date: 20250717
  Serious: Yes (Hospitalization, Other)
  Sender: PFIZER
  Company Number: AT-PFM-2025-02352

PATIENT
  Age: 67 Year
  Sex: Male

DRUGS (2)
  1. BRAFTOVI [Suspect]
     Active Substance: ENCORAFENIB
     Indication: Melanoma recurrent
     Dosage: 6 DF, QD (1/DAY)
     Route: 065
     Dates: start: 20240506
  2. MEKTOVI [Suspect]
     Active Substance: BINIMETINIB
     Indication: Melanoma recurrent
     Route: 065
     Dates: start: 20240506

REACTIONS (1)
  - Polyradiculoneuropathy [Recovered/Resolved]

NARRATIVE: CASE EVENT DATE: 20240621
